FAERS Safety Report 5747235-3 (Version None)
Quarter: 2008Q2

REPORT INFORMATION
  Report Type: 
  Country: None (occurrence: None)
  Receive Date: 20080519
  Receipt Date: 20080504
  Transmission Date: 20081010
  Serious: Yes (Death)
  Sender: FDA-Public Use
  Company Number: POMP-1000158

PATIENT
  Age: 2 Year
  Sex: Male

DRUGS (4)
  1. MYOZYME [Suspect]
     Indication: GLYCOGEN STORAGE DISEASE TYPE II
     Dosage: INTRAVENOUS
     Route: 042
  2. SALBUTAMOL (SALBUTAMOL SULFATE) [Concomitant]
  3. FLUTICASONE (FLUTICASONE PROPIONATE) [Concomitant]
  4. BI PAP (NIGHT TIME VENTILATION) [Concomitant]

REACTIONS (3)
  - CARDIAC ARREST [None]
  - NO THERAPEUTIC RESPONSE [None]
  - VENTRICULAR TACHYCARDIA [None]
